FAERS Safety Report 20685567 (Version 2)
Quarter: 2022Q2

REPORT INFORMATION
  Report Type: Spontaneous
  Country: US (occurrence: None)
  Receive Date: 20220407
  Receipt Date: 20220429
  Transmission Date: 20220720
  Serious: No
  Sender: FDA-Public Use
  Company Number: 2022A107962

PATIENT
  Sex: Female

DRUGS (2)
  1. BUDESONIDE\FORMOTEROL\GLYCOPYRRONIUM [Suspect]
     Active Substance: BUDESONIDE\FORMOTEROL\GLYCOPYRRONIUM
     Dosage: 120 INHALATION, 2 PUFF TWICE A DAY
     Route: 055
  2. BUDESONIDE\FORMOTEROL\GLYCOPYRRONIUM [Suspect]
     Active Substance: BUDESONIDE\FORMOTEROL\GLYCOPYRRONIUM
     Dosage: 1 PUFF TWICE A DAY AND ONLY TAKE 2 PUFF IF PATIENT NEEDS IT
     Route: 055

REACTIONS (6)
  - Dyspnoea [Unknown]
  - Chest pain [Recovered/Resolved]
  - Wrong technique in product usage process [Not Recovered/Not Resolved]
  - Product communication issue [Unknown]
  - Device use error [Not Recovered/Not Resolved]
  - Device malfunction [Not Recovered/Not Resolved]
